FAERS Safety Report 4924921-6 (Version None)
Quarter: 2006Q1

REPORT INFORMATION
  Report Type: 
  Country: None (occurrence: None)
  Receive Date: 20060222
  Receipt Date: 20060209
  Transmission Date: 20060701
  Serious: Yes (Hospitalization)
  Sender: FDA-Public Use
  Company Number: 2005-135780-NL

PATIENT
  Age: 45 Year
  Sex: Female

DRUGS (4)
  1. MIRTAZAPINE [Suspect]
     Dosage: DF
     Dates: start: 20040821
  2. PAROXETINE HYDROCHLORIDE [Suspect]
     Dosage: DF
     Dates: start: 20040821
  3. CYCLOBENZAPRINE HCL [Suspect]
     Dosage: DF
     Dates: start: 20040821
  4. ALCOHOL [Concomitant]

REACTIONS (4)
  - DYSARTHRIA [None]
  - HYPERTENSION [None]
  - SOMNOLENCE [None]
  - VOMITING [None]
